FAERS Safety Report 20045391 (Version 5)
Quarter: 2023Q2

REPORT INFORMATION
  Report Type: Spontaneous
  Country: US (occurrence: US)
  Receive Date: 20211108
  Receipt Date: 20230509
  Transmission Date: 20230722
  Serious: Yes (Disabling, Other)
  Sender: FDA-Public Use
  Company Number: US-BIOMARINAP-US-2021-139510

PATIENT

DRUGS (4)
  1. LARONIDASE [Suspect]
     Active Substance: LARONIDASE
     Indication: Mucopolysaccharidosis I
     Dosage: 46.4 MG, QW
     Route: 041
     Dates: start: 20030812
  2. LARONIDASE [Suspect]
     Active Substance: LARONIDASE
     Dosage: 46.4 MG, QW
     Route: 041
     Dates: start: 20091110
  3. LARONIDASE [Suspect]
     Active Substance: LARONIDASE
     Dosage: 46.4 MG, QW
     Route: 041
     Dates: start: 20190708
  4. LARONIDASE [Suspect]
     Active Substance: LARONIDASE
     Dosage: 49.3 (UNITS NOT REPORTED), QOW
     Route: 041
     Dates: start: 20190708

REACTIONS (13)
  - Gait disturbance [Not Recovered/Not Resolved]
  - Dysstasia [Not Recovered/Not Resolved]
  - Spinal cord compression [Recovering/Resolving]
  - Neuropathy peripheral [Recovering/Resolving]
  - Muscle rupture [Not Recovered/Not Resolved]
  - Gait inability [Recovering/Resolving]
  - Ligament rupture [Not Recovered/Not Resolved]
  - Spinal stenosis [Not Recovered/Not Resolved]
  - Pain [Not Recovered/Not Resolved]
  - Condition aggravated [Not Recovered/Not Resolved]
  - Arthralgia [Not Recovered/Not Resolved]
  - Product dose omission issue [Unknown]
  - Inappropriate schedule of product administration [Unknown]

NARRATIVE: CASE EVENT DATE: 20190708
